FAERS Safety Report 18645059 (Version 1)
Quarter: 2020Q4

REPORT INFORMATION
  Report Type: Spontaneous
  Country: DE (occurrence: DE)
  Receive Date: 20201221
  Receipt Date: 20201221
  Transmission Date: 20210114
  Serious: Yes (Other)
  Sender: FDA-Public Use
  Company Number: DE-MYLANLABS-2020M1103873

PATIENT
  Age: 49 Year
  Sex: Male
  Weight: 107 kg

DRUGS (17)
  1. ASA [Concomitant]
     Active Substance: ASPIRIN
     Dosage: 100 MILLIGRAM, QD
  2. BISOPROLOL [Concomitant]
     Active Substance: BISOPROLOL
     Dosage: 2.5 MG 1/2-0-1
     Dates: start: 20200801
  3. ENTRESTO [Concomitant]
     Active Substance: SACUBITRIL\VALSARTAN
     Dosage: 24/26  2-0-2
     Dates: start: 20200726
  4. ENTRESTO [Concomitant]
     Active Substance: SACUBITRIL\VALSARTAN
     Dosage: 24/26  1.5-0-2
     Dates: start: 20200719
  5. ENTRESTO [Concomitant]
     Active Substance: SACUBITRIL\VALSARTAN
     Dosage: 24/26  1-0-2
     Dates: start: 20200712
  6. BISOPROLOL [Concomitant]
     Active Substance: BISOPROLOL
     Dosage: 3 MILLIGRAM, BID
     Dates: start: 20200815
  7. SPIRONOLACTONE. [Concomitant]
     Active Substance: SPIRONOLACTONE
     Dosage: 25 MILLIGRAM, QD
  8. ENTRESTO [Concomitant]
     Active Substance: SACUBITRIL\VALSARTAN
     Dosage: 24/26  1-0-1.5
     Dates: start: 20200705
  9. TORASEMIDE [Concomitant]
     Active Substance: TORSEMIDE
     Dosage: 10 MILLIGRAM, QD
  10. ENTRESTO [Concomitant]
     Active Substance: SACUBITRIL\VALSARTAN
     Dosage: TARGET DOSE 97/103 MG
  11. CANDESARTAN. [Suspect]
     Active Substance: CANDESARTAN
     Indication: PRODUCT USED FOR UNKNOWN INDICATION
     Dosage: 4 MILLIGRAM, BID
     Route: 048
  12. BISOPROLOL [Concomitant]
     Active Substance: BISOPROLOL
     Dosage: 1 MILLIGRAM, BID
  13. TORASEMIDE [Concomitant]
     Active Substance: TORSEMIDE
     Dosage: 10 MILLIGRAM, Q8H
  14. ENTRESTO [Concomitant]
     Active Substance: SACUBITRIL\VALSARTAN
     Dosage: 24/26  1-0-1
     Dates: start: 20200701
  15. ATORVASTATIN [Concomitant]
     Active Substance: ATORVASTATIN
     Dosage: 40 MILLIGRAM, QD
  16. BISOPROLOL [Concomitant]
     Active Substance: BISOPROLOL
     Dosage: 1/2-0-1/2
  17. ENTRESTO [Concomitant]
     Active Substance: SACUBITRIL\VALSARTAN
     Dosage: AT TIME OF DISCHARGE: 24/26 1/2-0-1 FURTHER DOSING AS FAR AS COMPATIBLE ACCORDING TO BELOW SCHEME

REACTIONS (4)
  - Coronary artery disease [Unknown]
  - Cardiac failure chronic [Not Recovered/Not Resolved]
  - Bundle branch block left [Unknown]
  - Cardiac failure [Not Recovered/Not Resolved]

NARRATIVE: CASE EVENT DATE: 202005
